FAERS Safety Report 23108498 (Version 1)
Quarter: 2023Q4

REPORT INFORMATION
  Report Type: Spontaneous
  Country: US (occurrence: US)
  Receive Date: 20231026
  Receipt Date: 20231026
  Transmission Date: 20240110
  Serious: Yes (Other)
  Sender: FDA-Public Use
  Company Number: US-Axellia-004923

PATIENT
  Sex: Male
  Weight: 1.69 kg

DRUGS (9)
  1. VANCOMYCIN [Suspect]
     Active Substance: VANCOMYCIN
     Dosage: VANCO-PREMIXED
     Route: 064
     Dates: start: 20221201, end: 20221201
  2. CEFTRIAXONE [Suspect]
     Active Substance: CEFTRIAXONE\CEFTRIAXONE SODIUM
     Route: 064
     Dates: start: 20221201, end: 20221201
  3. PIPERACILLIN AND TAZOBACTAM [Suspect]
     Active Substance: PIPERACILLIN SODIUM\TAZOBACTAM SODIUM
     Route: 064
     Dates: start: 20221201, end: 20221202
  4. KETOROLAC [Suspect]
     Active Substance: KETOROLAC TROMETHAMINE
     Route: 064
     Dates: start: 20221201, end: 20221202
  5. CLONIDINE [Suspect]
     Active Substance: CLONIDINE
     Route: 064
     Dates: start: 20221201, end: 20221201
  6. LORAZEPAM [Suspect]
     Active Substance: LORAZEPAM
     Route: 064
     Dates: start: 20221201, end: 20221202
  7. NICOTINE [Suspect]
     Active Substance: NICOTINE
     Route: 064
     Dates: start: 20221201, end: 20221202
  8. THIAMINE [Suspect]
     Active Substance: THIAMINE
     Route: 064
     Dates: start: 20221201, end: 20221202
  9. VANCOMYCIN [Suspect]
     Active Substance: VANCOMYCIN
     Indication: Osteomyelitis
     Route: 064
     Dates: start: 20221201, end: 20221202

REACTIONS (2)
  - Premature baby [Unknown]
  - Foetal exposure during pregnancy [Unknown]
